FAERS Safety Report 6484244-3 (Version None)
Quarter: 2009Q4

REPORT INFORMATION
  Report Type: 
  Country: None (occurrence: None)
  Receive Date: 20091209
  Receipt Date: 20091204
  Transmission Date: 20100525
  Serious: Yes (Other)
  Sender: FDA-Public Use
  Company Number: B0611424A

PATIENT
  Sex: Male

DRUGS (2)
  1. ZOPHREN [Suspect]
     Indication: PREMEDICATION
     Route: 048
     Dates: start: 20090929, end: 20091005
  2. SUTENT [Suspect]
     Indication: RENAL CANCER
     Dosage: 25MG PER DAY
     Route: 048
     Dates: start: 20090926, end: 20091007

REACTIONS (6)
  - BLOOD ALKALINE PHOSPHATASE INCREASED [None]
  - BLOOD CREATININE INCREASED [None]
  - GAMMA-GLUTAMYLTRANSFERASE INCREASED [None]
  - LIVER INJURY [None]
  - THROMBOCYTOPENIA [None]
  - TRANSAMINASES INCREASED [None]
